FAERS Safety Report 10428456 (Version 2)
Quarter: 2014Q3

REPORT INFORMATION
  Report Type: Spontaneous
  Country: US (occurrence: None)
  Receive Date: 20140829
  Receipt Date: 20140911
  Transmission Date: 20150326
  Serious: Yes (Hospitalization)
  Sender: FDA-Public Use
  Company Number: 2014US007384

PATIENT
  Age: 59 Year
  Sex: Male

DRUGS (2)
  1. ELIGARD [Suspect]
     Active Substance: LEUPROLIDE ACETATE
     Indication: PRODUCT USED FOR UNKNOWN INDICATION
     Dates: start: 201404, end: 201404
  2. DEGARELIX (DEGARELIX) (240 MG, 80 MG) [Suspect]
     Active Substance: DEGARELIX
     Indication: PROSTATE CANCER
     Dosage: Q4WEEKS
     Route: 058
     Dates: start: 20140311, end: 20140311

REACTIONS (3)
  - Acute psychosis [None]
  - Injection site nodule [None]
  - Personality change [None]

NARRATIVE: CASE EVENT DATE: 201403
